FAERS Safety Report 25035682 (Version 2)
Quarter: 2025Q1

REPORT INFORMATION
  Report Type: Report from Study
  Country: US (occurrence: US)
  Receive Date: 20250304
  Receipt Date: 20250318
  Transmission Date: 20250408
  Serious: No
  Sender: ACADIA PHARMACEUTICALS
  Company Number: US-ACADIA PHARMACEUTICALS INC.-ACA-2025-PIM-001862

PATIENT
  Age: 75 Year
  Sex: Male

DRUGS (16)
  1. NUPLAZID [Suspect]
     Active Substance: PIMAVANSERIN TARTRATE
     Indication: Parkinson^s disease psychosis
     Dosage: 34 MILLIGRAM, QD
     Route: 048
     Dates: start: 20240802
  2. BACLOFEN [Concomitant]
     Active Substance: BACLOFEN
  3. GABAPENTIN [Concomitant]
     Active Substance: GABAPENTIN
  4. CALCIUM 600 WITH VITAMIN D [Concomitant]
  5. CARBIDOPA\LEVODOPA [Concomitant]
     Active Substance: CARBIDOPA\LEVODOPA
  6. DROXIDOPA [Concomitant]
     Active Substance: DROXIDOPA
  7. DULOXETINE [Concomitant]
     Active Substance: DULOXETINE
  8. FENOFIBRATE [Concomitant]
     Active Substance: FENOFIBRATE
  9. GLIPIZIDE [Concomitant]
     Active Substance: GLIPIZIDE
  10. LISINOPRIL [Concomitant]
     Active Substance: LISINOPRIL
  11. MAGNESIUM OXIDE [Concomitant]
     Active Substance: MAGNESIUM OXIDE
  12. METOPROLOL TARTRATE [Concomitant]
     Active Substance: METOPROLOL TARTRATE
  13. VITAMINS NOS [Concomitant]
     Active Substance: VITAMINS
  14. PRAZOSIN [Concomitant]
     Active Substance: PRAZOSIN
  15. QUETIAPINE [Concomitant]
     Active Substance: QUETIAPINE
  16. TACROLIMUS [Concomitant]
     Active Substance: TACROLIMUS

REACTIONS (2)
  - Memory impairment [Not Recovered/Not Resolved]
  - Product dispensing error [Not Recovered/Not Resolved]

NARRATIVE: CASE EVENT DATE: 20250306
